FAERS Safety Report 13184104 (Version 2)
Quarter: 2017Q1

REPORT INFORMATION
  Report Type: Spontaneous
  Country: CA (occurrence: CA)
  Receive Date: 20170203
  Receipt Date: 20170203
  Transmission Date: 20170428
  Serious: Yes (Other)
  Sender: FDA-Public Use
  Company Number: CA-TEVA-734752ACC

PATIENT
  Age: 52 Year
  Sex: Female
  Weight: 30.42 kg

DRUGS (4)
  1. APO-DIVALPROEX [Concomitant]
     Active Substance: DIVALPROEX SODIUM
  2. QUETIAPINE. [Concomitant]
     Active Substance: QUETIAPINE
  3. HALOPERIDOL. [Suspect]
     Active Substance: HALOPERIDOL
     Route: 048
  4. LORAZEPAM. [Concomitant]
     Active Substance: LORAZEPAM

REACTIONS (2)
  - Pruritus [Recovering/Resolving]
  - Skin plaque [Recovering/Resolving]
